FAERS Safety Report 17389594 (Version 1)
Quarter: 2020Q1

REPORT INFORMATION
  Report Type: Spontaneous
  Country: US (occurrence: US)
  Receive Date: 20200123
  Receipt Date: 20200123
  Transmission Date: 20200409
  Serious: Yes (Hospitalization)
  Sender: FDA-Public Use
  Company Number: None

PATIENT
  Age: 69 Year
  Sex: Female

DRUGS (9)
  1. LISINOPRIL. [Concomitant]
     Active Substance: LISINOPRIL
  2. LATANOPROST. [Concomitant]
     Active Substance: LATANOPROST
  3. METOPROL SUC [Concomitant]
  4. BUTENAFINE [Concomitant]
     Active Substance: BUTENAFINE HYDROCHLORIDE
  5. POT CHLORIDE [Concomitant]
     Active Substance: POTASSIUM CHLORIDE
  6. HUMIRA [Suspect]
     Active Substance: ADALIMUMAB
     Route: 058
     Dates: start: 20180320
  7. ALENDRONATE [Concomitant]
     Active Substance: ALENDRONATE SODIUM
  8. FUROSEMIDE. [Concomitant]
     Active Substance: FUROSEMIDE
  9. WARFARIN [Concomitant]
     Active Substance: WARFARIN

REACTIONS (1)
  - Viral infection [None]

NARRATIVE: CASE EVENT DATE: 201912
